FAERS Safety Report 12506160 (Version 1)
Quarter: 2016Q2

REPORT INFORMATION
  Report Type: Spontaneous
  Country: US (occurrence: US)
  Receive Date: 20160628
  Receipt Date: 20160628
  Transmission Date: 20160815
  Serious: No
  Sender: FDA-Public Use
  Company Number: US-DSJP-DSU-2016-111243

PATIENT
  Sex: Male

DRUGS (3)
  1. WELCHOL [Suspect]
     Active Substance: COLESEVELAM HYDROCHLORIDE
     Indication: DIARRHOEA
  2. UNKNOWN ANTI-REJECTION MEDICATIONS [Concomitant]
     Indication: TRANSPLANT REJECTION
     Dosage: UNK
  3. WELCHOL [Suspect]
     Active Substance: COLESEVELAM HYDROCHLORIDE
     Indication: IRRITABLE BOWEL SYNDROME
     Dosage: 625 MG, QD
     Route: 048

REACTIONS (3)
  - Nausea [Not Recovered/Not Resolved]
  - Off label use [Not Recovered/Not Resolved]
  - Abdominal distension [Not Recovered/Not Resolved]
